FAERS Safety Report 18259238 (Version 1)
Quarter: 2020Q3

REPORT INFORMATION
  Report Type: Report from Study
  Country: None (occurrence: CN)
  Receive Date: 20200911
  Receipt Date: 20200911
  Transmission Date: 20201103
  Serious: Yes (Hospitalization)
  Sender: FDA-Public Use
  Company Number: CN-ABBVIE-20P-035-3552657-00

PATIENT
  Age: 82 Year
  Sex: Female
  Weight: 37 kg

DRUGS (53)
  1. VENETOCLAX. [Suspect]
     Active Substance: VENETOCLAX
     Route: 048
     Dates: start: 20180825, end: 20181016
  2. CYTARABINE. [Suspect]
     Active Substance: CYTARABINE
     Dosage: DAYS 1?10 OF EACH 28?DAY CYCLE
     Route: 058
     Dates: start: 20190211, end: 20190220
  3. POTASSIUM CHLORIDE INJECTION [Concomitant]
     Active Substance: POTASSIUM CHLORIDE
     Indication: PROPHYLAXIS
     Route: 041
     Dates: start: 20181002, end: 20181002
  4. PROMETHAZINE PIECE [Concomitant]
     Indication: ALLERGY PROPHYLAXIS
     Route: 048
     Dates: start: 20190302, end: 20190502
  5. HUMAN ALBUMIN [Concomitant]
     Active Substance: ALBUMIN HUMAN
     Route: 042
     Dates: start: 20180827, end: 20180903
  6. RECOMBINANT HUMAN GRANULOCYTE COLONY STIMULATIONG FACTOR INJECTION [Concomitant]
     Route: 058
     Dates: start: 20181005, end: 20181010
  7. DECITABINE. [Concomitant]
     Active Substance: DECITABINE
     Indication: ACUTE MYELOID LEUKAEMIA
     Route: 042
     Dates: start: 20190614, end: 20190616
  8. VENETOCLAX. [Suspect]
     Active Substance: VENETOCLAX
     Route: 048
     Dates: start: 20180823, end: 20180823
  9. CHLORPHENIRAMINE MALEATE. [Concomitant]
     Active Substance: CHLORPHENIRAMINE MALEATE
     Indication: ALLERGY PROPHYLAXIS
     Route: 048
     Dates: start: 20180904, end: 20180904
  10. CHLORPHENIRAMINE MALEATE. [Concomitant]
     Active Substance: CHLORPHENIRAMINE MALEATE
     Route: 048
     Dates: start: 20181002, end: 20181003
  11. PROMETHAZINE PIECE [Concomitant]
     Route: 048
     Dates: start: 20181009, end: 20181009
  12. RECOMBINANT HUMAN GRANULOCYTE COLONY STIMULATIONG FACTOR INJECTION [Concomitant]
     Indication: WHITE BLOOD CELL COUNT DECREASED
     Route: 058
     Dates: start: 20180905, end: 20180914
  13. CEFORPERAZONE SODIUM AND SULBACTAM SODIUM FOR INJECTION [Concomitant]
     Indication: INFECTION
     Route: 042
     Dates: start: 20180913, end: 20180915
  14. INSULIN [Concomitant]
     Active Substance: INSULIN NOS
     Route: 041
     Dates: start: 20181004, end: 20181009
  15. FAT EMULSION NOS [Concomitant]
     Active Substance: EGG PHOSPHOLIPIDS\SAFFLOWER OIL\SOYBEAN OIL
     Indication: ASTHENIA
     Route: 041
     Dates: start: 20181004, end: 20181010
  16. CYTARABINE. [Suspect]
     Active Substance: CYTARABINE
     Indication: ACUTE MYELOID LEUKAEMIA
     Dosage: DAYS 1?10 OF EACH 28?DAY CYCLE
     Route: 058
     Dates: start: 20180822, end: 20180928
  17. NORMAL SALINE SOLUTION [Concomitant]
     Active Substance: SODIUM CHLORIDE
     Indication: PROPHYLAXIS
     Route: 042
     Dates: start: 20180821, end: 20180827
  18. POTASSIUM CHLORIDE INJECTION [Concomitant]
     Active Substance: POTASSIUM CHLORIDE
     Indication: PROPHYLAXIS
     Route: 042
     Dates: start: 20180821, end: 20180827
  19. CHLORPHENIRAMINE MALEATE. [Concomitant]
     Active Substance: CHLORPHENIRAMINE MALEATE
     Indication: ALLERGY PROPHYLAXIS
     Route: 048
     Dates: start: 20180828, end: 20180828
  20. RECOMBINANT HUMAN GRANULOCYTE COLONY STIMULATIONG FACTOR INJECTION [Concomitant]
     Route: 058
     Dates: start: 20190227, end: 20190305
  21. RECOMBINANT HUMAN GRANULOCYTE COLONY STIMULATIONG FACTOR INJECTION [Concomitant]
     Route: 058
     Dates: start: 20190306, end: 20190313
  22. FAT EMULSION NOS [Concomitant]
     Active Substance: EGG PHOSPHOLIPIDS\SAFFLOWER OIL\SOYBEAN OIL
     Indication: PROPHYLAXIS
     Route: 041
     Dates: start: 20180920, end: 20180930
  23. VENETOCLAX. [Suspect]
     Active Substance: VENETOCLAX
     Route: 048
     Dates: start: 20180824, end: 20180824
  24. CALCIUM CARBONATE AND VITAMIN D3 TABLETS [Concomitant]
     Indication: MINERAL SUPPLEMENTATION
     Route: 048
     Dates: start: 20180824, end: 20181011
  25. CEFORPERAZONE SODIUM AND SULBACTAM SODIUM FOR INJECTION [Concomitant]
     Route: 041
     Dates: start: 20180927, end: 20180927
  26. CONCENTRATED SODIUM CHLORIDE INJECTION [Concomitant]
     Indication: PROPHYLAXIS
     Route: 041
     Dates: start: 20180928, end: 20180929
  27. VENETOCLAX. [Suspect]
     Active Substance: VENETOCLAX
     Route: 048
     Dates: start: 20181224, end: 20190113
  28. VENETOCLAX. [Suspect]
     Active Substance: VENETOCLAX
     Route: 048
     Dates: start: 20190211, end: 20190303
  29. CYTARABINE. [Suspect]
     Active Substance: CYTARABINE
     Dosage: DAYS 1?10 OF EACH 28?DAY CYCLE
     Route: 058
     Dates: start: 20181224, end: 20190102
  30. POTASSIUM CHLORIDE INJECTION [Concomitant]
     Active Substance: POTASSIUM CHLORIDE
     Indication: PROPHYLAXIS
     Route: 042
     Dates: start: 20180912, end: 20180912
  31. CHLORPHENIRAMINE MALEATE. [Concomitant]
     Active Substance: CHLORPHENIRAMINE MALEATE
     Indication: ALLERGY PROPHYLAXIS
     Route: 048
     Dates: start: 20180831, end: 20180831
  32. PROMETHAZINE PIECE [Concomitant]
     Route: 048
     Dates: start: 20181002, end: 20181003
  33. HUMAN ALBUMIN [Concomitant]
     Active Substance: ALBUMIN HUMAN
     Route: 042
     Dates: start: 20181004, end: 20181010
  34. CEFORPERAZONE SODIUM AND SULBACTAM SODIUM FOR INJECTION [Concomitant]
     Route: 041
     Dates: start: 20180928, end: 20181002
  35. CONCENTRATED SODIUM CHLORIDE INJECTION [Concomitant]
     Route: 041
     Dates: start: 20180924, end: 20181001
  36. VENETOCLAX. [Suspect]
     Active Substance: VENETOCLAX
     Route: 048
     Dates: start: 20181101, end: 20181128
  37. CYTARABINE. [Suspect]
     Active Substance: CYTARABINE
     Dosage: DAYS 1?10 OF EACH 28?DAY CYCLE
     Route: 058
     Dates: start: 20181101, end: 20181110
  38. SODIUM BICARBONATE. [Concomitant]
     Active Substance: SODIUM BICARBONATE
     Indication: PROPHYLAXIS
     Route: 042
     Dates: start: 20180821, end: 20180827
  39. POTASSIUM CHLORIDE INJECTION [Concomitant]
     Active Substance: POTASSIUM CHLORIDE
     Route: 041
     Dates: start: 20181004, end: 20181009
  40. PROMETHAZINE PIECE [Concomitant]
     Route: 048
     Dates: start: 20181122, end: 20181122
  41. INSULIN [Concomitant]
     Active Substance: INSULIN NOS
     Route: 041
     Dates: start: 20181002, end: 20181002
  42. POTASSIUM CHLORIDE INJECTION [Concomitant]
     Active Substance: POTASSIUM CHLORIDE
     Indication: ASTHENIA
     Route: 041
     Dates: start: 20180924, end: 20181001
  43. CHLORPHENIRAMINE MALEATE. [Concomitant]
     Active Substance: CHLORPHENIRAMINE MALEATE
     Route: 048
     Dates: start: 20180907, end: 20180907
  44. PROMETHAZINE PIECE [Concomitant]
     Route: 048
     Dates: start: 20181127, end: 20181127
  45. HUMAN ALBUMIN [Concomitant]
     Active Substance: ALBUMIN HUMAN
     Indication: HYPOALBUMINAEMIA
     Route: 041
     Dates: start: 20181002, end: 20181002
  46. CEFORPERAZONE SODIUM AND SULBACTAM SODIUM FOR INJECTION [Concomitant]
     Route: 041
     Dates: start: 20180912, end: 20180912
  47. VENETOCLAX. [Suspect]
     Active Substance: VENETOCLAX
     Indication: ACUTE MYELOID LEUKAEMIA
     Route: 048
     Dates: start: 20180822, end: 20180822
  48. CHLORPHENIRAMINE MALEATE. [Concomitant]
     Active Substance: CHLORPHENIRAMINE MALEATE
     Route: 048
     Dates: start: 20180917, end: 20180917
  49. PROMETHAZINE PIECE [Concomitant]
     Route: 048
     Dates: start: 20180917, end: 20180917
  50. RECOMBINANT HUMAN GRANULOCYTE COLONY STIMULATIONG FACTOR INJECTION [Concomitant]
     Route: 058
     Dates: start: 20181126, end: 20181205
  51. INSULIN [Concomitant]
     Active Substance: INSULIN NOS
     Indication: PROPHYLAXIS
     Route: 041
     Dates: start: 20180924, end: 20181001
  52. CONCENTRATED SODIUM CHLORIDE INJECTION [Concomitant]
     Indication: ASTHENIA
     Route: 041
     Dates: start: 20181002, end: 20181002
  53. CONCENTRATED SODIUM CHLORIDE INJECTION [Concomitant]
     Route: 041
     Dates: start: 20181004, end: 20181009

REACTIONS (1)
  - Thrombocytopenia [Not Recovered/Not Resolved]

NARRATIVE: CASE EVENT DATE: 20181005
